FAERS Safety Report 9326180 (Version 2)
Quarter: 2013Q4

REPORT INFORMATION
  Report Type: Report from Study
  Country: MX (occurrence: MX)
  Receive Date: 20130604
  Receipt Date: 20131211
  Transmission Date: 20140711
  Serious: Yes (Hospitalization, Other)
  Sender: FDA-Public Use
  Company Number: MX-ROCHE-1231894

PATIENT
  Age: 50 Year
  Sex: Female

DRUGS (5)
  1. HERCEPTIN [Suspect]
     Indication: BREAST CANCER
     Route: 042
     Dates: start: 201210, end: 20130918
  2. XELODA [Interacting]
     Indication: BREAST CANCER
     Route: 048
     Dates: start: 201309, end: 201309
  3. XELODA [Interacting]
     Route: 048
     Dates: start: 20131126
  4. TYKERB [Concomitant]
     Indication: BREAST CANCER
     Route: 048
     Dates: start: 201309, end: 201309
  5. TYKERB [Concomitant]
     Route: 048
     Dates: start: 20131107

REACTIONS (7)
  - Pleural effusion [Recovering/Resolving]
  - Disease progression [Unknown]
  - Oedema peripheral [Recovering/Resolving]
  - Infusion site phlebitis [Unknown]
  - Erythema [Recovered/Resolved]
  - Rash [Recovered/Resolved]
  - Radiation interaction [Unknown]
